FAERS Safety Report 5575207-0 (Version None)
Quarter: 2007Q4

REPORT INFORMATION
  Report Type: 
  Country: None (occurrence: None)
  Receive Date: 20071227
  Receipt Date: 20071218
  Transmission Date: 20080405
  Serious: Yes (Other)
  Sender: FDA-Public Use
  Company Number: US-ELI_LILLY_AND_COMPANY-US200711006508

PATIENT
  Age: 54 Year
  Sex: Female
  Weight: 77.097 kg

DRUGS (11)
  1. FORTEO [Suspect]
     Indication: OSTEOPOROSIS
     Dosage: 20 UG, DAILY (1/D)
     Dates: start: 20071108
  2. ZOLOFT [Concomitant]
  3. ATENOLOL [Concomitant]
  4. PROTONIX [Concomitant]
  5. TRIAMTEREN [Concomitant]
  6. HYDROCHLOROTHIAZIDE [Concomitant]
  7. CRESTOR [Concomitant]
  8. LYRICA [Concomitant]
  9. ACYCLOVIR [Concomitant]
  10. VIACTIV /USA/ [Concomitant]
  11. LODINE [Concomitant]

REACTIONS (1)
  - OSTEONECROSIS [None]
